FAERS Safety Report 18004871 (Version 1)
Quarter: 2020Q3

REPORT INFORMATION
  Report Type: Report from Study
  Country: None (occurrence: AU)
  Receive Date: 20200710
  Receipt Date: 20200710
  Transmission Date: 20201103
  Serious: Yes (Other)
  Sender: FDA-Public Use
  Company Number: AU-ABBVIE-19K-008-2916365-00

PATIENT

DRUGS (1)
  1. HUMIRA [Suspect]
     Active Substance: ADALIMUMAB
     Indication: CROHN^S DISEASE
     Route: 058
     Dates: end: 2020

REACTIONS (5)
  - Faecal calprotectin increased [Unknown]
  - Pain [Recovering/Resolving]
  - Gastrointestinal stoma complication [Unknown]
  - Small intestinal obstruction [Unknown]
  - Drug level decreased [Unknown]
